FAERS Safety Report 7266902-6 (Version None)
Quarter: 2011Q1

REPORT INFORMATION
  Report Type: 
  Country: None (occurrence: None)
  Receive Date: 20110201
  Receipt Date: 20110119
  Transmission Date: 20110831
  Serious: Yes (Other)
  Sender: FDA-Public Use
  Company Number: CA-ELI_LILLY_AND_COMPANY-CA201101004449

PATIENT
  Sex: Female

DRUGS (26)
  1. ZYPREXA [Suspect]
     Dosage: 15 MG, 2/D
  2. ROBITUSSIN [Concomitant]
  3. LIPITOR [Concomitant]
  4. RIVA-CYCLOPRINE [Concomitant]
  5. APO-PAROXETINE [Concomitant]
  6. APO-SULIN [Concomitant]
     Dosage: 200 MG, 2/D
  7. CELEBREX [Concomitant]
  8. APO-NAPROXEN [Concomitant]
  9. ALTACE [Concomitant]
     Dosage: 5 MG, DAILY (1/D)
  10. ATIVAN [Concomitant]
     Dosage: 2 MG, 2/D
  11. SEROQUEL [Concomitant]
  12. PARIET [Concomitant]
  13. ARTHROTEC [Concomitant]
  14. SYNTHROID [Concomitant]
  15. PAROXETINE HCL [Concomitant]
     Dosage: 20 MG, DAILY (1/D)
  16. NICODERM [Concomitant]
  17. AVELOX [Concomitant]
     Dosage: 400 MG, DAILY (1/D)
  18. XENICAL [Concomitant]
  19. STIEVA-A [Concomitant]
  20. APO-TEMAZEPAM [Concomitant]
  21. LITHIUM CARBONATE [Concomitant]
  22. LITHIUM [Concomitant]
  23. RIVOTRIL [Concomitant]
  24. TRIATEC-30 [Concomitant]
  25. APO-NAPRO-NA [Concomitant]
  26. VALPROATE SODIUM [Concomitant]

REACTIONS (4)
  - WEIGHT INCREASED [None]
  - VISUAL IMPAIRMENT [None]
  - DIABETES MELLITUS [None]
  - BLINDNESS [None]
